FAERS Safety Report 19517089 (Version 1)
Quarter: 2021Q3

REPORT INFORMATION
  Report Type: Spontaneous
  Country: SY (occurrence: SY)
  Receive Date: 20210712
  Receipt Date: 20210712
  Transmission Date: 20211014
  Serious: Yes (Death, Hospitalization, Other)
  Sender: FDA-Public Use
  Company Number: SY-BION-009912

PATIENT
  Age: 12 Year
  Sex: Male

DRUGS (3)
  1. AMIODARONE [Concomitant]
     Active Substance: AMIODARONE
     Indication: VENTRICULAR TACHYCARDIA
     Dosage: LOADING DOSE OF 5 MG/KG OVER 20 TO 60 MINUTES REPEATED TWICE UP TO A MAXIMUM DOSE OF 15 MG/KG
  2. BISOPROLOL [Concomitant]
     Active Substance: BISOPROLOL
  3. VALPROIC ACID. [Suspect]
     Active Substance: VALPROIC ACID
     Indication: EPILEPSY
     Dosage: 500 MG REPEATED TWICE

REACTIONS (1)
  - Cardiomyopathy [Fatal]
